FAERS Safety Report 5772638-0 (Version None)
Quarter: 2008Q2

REPORT INFORMATION
  Report Type: 
  Country: None (occurrence: None)
  Receive Date: 20080613
  Receipt Date: 20080529
  Transmission Date: 20081010
  Serious: No
  Sender: FDA-Public Use
  Company Number: US-BOEHRINGER INGELHEIM GMBH, GERMANY-2008-BP-08436BP

PATIENT
  Sex: Male

DRUGS (2)
  1. FLOMAX [Suspect]
     Indication: DYSURIA
     Route: 048
     Dates: start: 20080524
  2. TRAZODONE HCL [Concomitant]

REACTIONS (2)
  - FEELING JITTERY [None]
  - SEMEN VOLUME ABNORMAL [None]
